FAERS Safety Report 17582443 (Version 3)
Quarter: 2020Q2

REPORT INFORMATION
  Report Type: Report from Study
  Country: None (occurrence: FR)
  Receive Date: 20200325
  Receipt Date: 20200408
  Transmission Date: 20200713
  Serious: Yes (Hospitalization)
  Sender: FDA-Public Use
  Company Number: FR-ABBVIE-20P-056-3301296-00

PATIENT
  Age: 11 Year
  Sex: Male
  Weight: 19 kg

DRUGS (24)
  1. VENETOCLAX. [Suspect]
     Active Substance: VENETOCLAX
     Dosage: GASTROSTOMY
     Route: 050
     Dates: start: 20200101, end: 20200112
  2. CHLOREXIDIN [Concomitant]
     Indication: DENTAL DISORDER PROPHYLAXIS
     Route: 061
     Dates: start: 20191230
  3. LEVOCETRIZINE [Concomitant]
     Active Substance: LEVOCETIRIZINE
     Indication: ANTIALLERGIC THERAPY
     Route: 048
     Dates: start: 20191230
  4. OSELTAMIVIR [Concomitant]
     Active Substance: OSELTAMIVIR
     Indication: INFLUENZA
     Route: 048
     Dates: start: 20200221
  5. ONDANSETRON [Concomitant]
     Active Substance: ONDANSETRON
     Indication: PROPHYLAXIS OF NAUSEA AND VOMITING
     Route: 042
     Dates: start: 20191230
  6. VENETOCLAX. [Suspect]
     Active Substance: VENETOCLAX
     Indication: REFRACTORY CANCER
     Dosage: GASTROSTOMY
     Route: 050
     Dates: start: 20191231, end: 20191231
  7. MICAFUNGIN. [Concomitant]
     Active Substance: MICAFUNGIN SODIUM
     Indication: NEUTROPENIA
     Route: 042
     Dates: start: 20200127
  8. ONDANSETRON [Concomitant]
     Active Substance: ONDANSETRON
     Indication: NAUSEA
  9. DEXTROSE 5% WATER [Concomitant]
     Indication: PROPHYLAXIS
     Route: 042
     Dates: start: 20191230, end: 20200109
  10. VENETOCLAX. [Suspect]
     Active Substance: VENETOCLAX
     Route: 050
     Dates: start: 20200113, end: 20200227
  11. ONDANSETRON [Concomitant]
     Active Substance: ONDANSETRON
     Indication: CHEMOTHERAPY
     Route: 048
     Dates: start: 20200224
  12. ZINC. [Concomitant]
     Active Substance: ZINC
     Indication: DENTAL DISORDER PROPHYLAXIS
     Route: 061
     Dates: start: 20191230
  13. VENETOCLAX. [Suspect]
     Active Substance: VENETOCLAX
     Indication: RECURRENT CANCER
     Dosage: GASTROSTOMY
     Route: 050
     Dates: start: 20191230, end: 20191230
  14. AZACITIDINE. [Suspect]
     Active Substance: AZACITIDINE
     Indication: RECURRENT CANCER
     Route: 042
     Dates: start: 20200310
  15. BACTRIM [Concomitant]
     Active Substance: SULFAMETHOXAZOLE\TRIMETHOPRIM
     Indication: CHEMOTHERAPY
     Route: 042
     Dates: start: 20191230
  16. POLARAMINE [Concomitant]
     Active Substance: DEXCHLORPHENIRAMINE MALEATE
     Indication: ANTIALLERGIC THERAPY
     Route: 042
     Dates: start: 20200103
  17. AZACITIDINE. [Suspect]
     Active Substance: AZACITIDINE
     Indication: REFRACTORY CANCER
     Dosage: FOR 7 DAYS OF EACH CYCLE
     Route: 042
     Dates: start: 20200102, end: 20200227
  18. SODIUM BICARBONATE. [Concomitant]
     Active Substance: SODIUM BICARBONATE
     Indication: DENTAL DISORDER PROPHYLAXIS
     Route: 061
     Dates: start: 20191230
  19. BACTRIM [Concomitant]
     Active Substance: SULFAMETHOXAZOLE\TRIMETHOPRIM
     Indication: INFECTION PROPHYLAXIS
  20. HYDROCORTISONE. [Concomitant]
     Active Substance: HYDROCORTISONE
     Indication: PROPHYLAXIS
     Route: 042
     Dates: start: 20200103
  21. VENETOCLAX. [Suspect]
     Active Substance: VENETOCLAX
     Route: 050
     Dates: start: 20200310
  22. RASBURICASE [Concomitant]
     Active Substance: RASBURICASE
     Indication: PROPHYLAXIS
     Dates: start: 20191230, end: 20191230
  23. ACIDE TRANEXAMIQUE [Concomitant]
     Indication: TOOTH LOSS
     Route: 061
     Dates: start: 20200113
  24. AMYCAMINE [Concomitant]
     Indication: ANTIFUNGAL PROPHYLAXIS
     Route: 042
     Dates: start: 20200127

REACTIONS (2)
  - Influenza [Recovered/Resolved]
  - Febrile neutropenia [Recovered/Resolved]

NARRATIVE: CASE EVENT DATE: 20200227
